FAERS Safety Report 24337209 (Version 1)
Quarter: 2024Q3

REPORT INFORMATION
  Report Type: Spontaneous
  Country: DE (occurrence: DE)
  Receive Date: 20240919
  Receipt Date: 20240919
  Transmission Date: 20241017
  Serious: Yes (Hospitalization)
  Sender: ROCHE
  Company Number: None

PATIENT
  Age: 12 Year
  Sex: Male
  Weight: 37.4 kg

DRUGS (5)
  1. MABTHERA [Suspect]
     Active Substance: RITUXIMAB
     Indication: B-cell lymphoma
     Route: 042
     Dates: start: 20231017, end: 20231019
  2. PREDNISOLONE [Concomitant]
     Active Substance: PREDNISOLONE
     Indication: Burkitt^s leukaemia
     Route: 029
     Dates: start: 20231017, end: 20231017
  3. METHOTREXATE [Concomitant]
     Active Substance: METHOTREXATE
     Indication: Burkitt^s leukaemia
     Route: 029
     Dates: start: 20231017, end: 20231017
  4. CYTARABINE [Concomitant]
     Active Substance: CYTARABINE
     Indication: Burkitt^s leukaemia
     Route: 029
     Dates: start: 20231017, end: 20231017
  5. PREGABALIN [Concomitant]
     Active Substance: PREGABALIN
     Route: 048
     Dates: end: 20231018

REACTIONS (5)
  - Pyrexia [Recovered/Resolved]
  - Cytokine release syndrome [Recovered/Resolved]
  - Hypersensitivity [Recovered/Resolved]
  - Nausea [Recovered/Resolved]
  - Chills [Recovered/Resolved]

NARRATIVE: CASE EVENT DATE: 20231017
